FAERS Safety Report 7260284-1 (Version None)
Quarter: 2011Q1

REPORT INFORMATION
  Report Type: 
  Country: None (occurrence: None)
  Receive Date: 20110130
  Receipt Date: 20100910
  Transmission Date: 20110831
  Serious: No
  Sender: FDA-Public Use
  Company Number: US-ABBOTT-10P-163-0670220-00

PATIENT
  Age: 60 Year
  Sex: Male

DRUGS (3)
  1. MYLOXICAM [Concomitant]
     Indication: ANKYLOSING SPONDYLITIS
  2. FLOMAX [Concomitant]
     Indication: PROSTATOMEGALY
  3. HUMIRA [Suspect]
     Indication: ANKYLOSING SPONDYLITIS
     Dates: start: 20100801

REACTIONS (1)
  - ERYTHEMA [None]
